FAERS Safety Report 18963056 (Version 1)
Quarter: 2021Q1

REPORT INFORMATION
  Report Type: Spontaneous
  Country: US (occurrence: US)
  Receive Date: 20210303
  Receipt Date: 20210303
  Transmission Date: 20210420
  Serious: Yes (Hospitalization)
  Sender: FDA-Public Use
  Company Number: US-PFIZER INC-2012150765

PATIENT
  Age: 61 Year
  Sex: Female

DRUGS (7)
  1. CEFEPIME HYDROCHLORIDE. [Concomitant]
     Active Substance: CEFEPIME HYDROCHLORIDE
     Indication: FEBRILE NEUTROPENIA
     Dosage: UNK
     Route: 042
  2. ETOPOSIDE. [Concomitant]
     Active Substance: ETOPOSIDE
     Indication: BONE MARROW CONDITIONING REGIMEN
     Dosage: UNK
  3. METHOTREXATE SODIUM. [Concomitant]
     Active Substance: METHOTREXATE SODIUM
     Dosage: UNK
  4. MELPHALAN. [Concomitant]
     Active Substance: MELPHALAN
     Indication: BONE MARROW CONDITIONING REGIMEN
     Dosage: UNK
  5. CARMUSTINE. [Concomitant]
     Active Substance: CARMUSTINE
     Indication: BONE MARROW CONDITIONING REGIMEN
     Dosage: UNK
  6. CYTARABINE. [Suspect]
     Active Substance: CYTARABINE
     Indication: BONE MARROW CONDITIONING REGIMEN
     Dosage: UNK
  7. VANCOMYCIN HYDROCHLORIDE. [Concomitant]
     Active Substance: VANCOMYCIN HYDROCHLORIDE
     Indication: FEBRILE NEUTROPENIA
     Dosage: UNK
     Route: 042

REACTIONS (1)
  - Palmar-plantar erythrodysaesthesia syndrome [Recovered/Resolved]
